FAERS Safety Report 9057321 (Version 1)
Quarter: 2013Q1

REPORT INFORMATION
  Report Type: Spontaneous
  Country: US (occurrence: US)
  Receive Date: 20130131
  Receipt Date: 20130131
  Transmission Date: 20140127
  Serious: Yes (Other)
  Sender: FDA-Public Use
  Company Number: US-NOVEN-13US006026

PATIENT
  Age: 45 Year
  Sex: Male

DRUGS (7)
  1. PAROXETINE [Suspect]
     Indication: MAJOR DEPRESSION
     Dosage: 37.5 MG, QD
  2. PAROXETINE [Suspect]
     Dosage: 25 MG, QD
  3. PAROXETINE [Suspect]
     Dosage: 12.5 MG, QD
  4. ZOLPIDEM [Suspect]
     Indication: INSOMNIA
     Dosage: 10 MG, QD
  5. LORAZEPAM [Suspect]
     Indication: PRODUCT USED FOR UNKNOWN INDICATION
     Dosage: 1 MG, BID, PRN
  6. QUETIAPINE [Suspect]
     Indication: PRODUCT USED FOR UNKNOWN INDICATION
     Dosage: 100 MG, QD
  7. QUETIAPINE [Suspect]
     Dosage: 25 MG, QD

REACTIONS (21)
  - Homicide [Unknown]
  - Drug interaction [Unknown]
  - Overdose [Unknown]
  - Drug ineffective [Unknown]
  - Feeling of despair [Unknown]
  - Disorientation [Unknown]
  - Speech disorder [Unknown]
  - Catatonia [Unknown]
  - Eye disorder [Unknown]
  - Unresponsive to stimuli [Unknown]
  - Staring [Unknown]
  - Psychotic disorder [Unknown]
  - Major depression [Unknown]
  - Acute stress disorder [Unknown]
  - Personality disorder [Unknown]
  - Aggression [Unknown]
  - Amnesia [Unknown]
  - Confusional state [Unknown]
  - Restlessness [Unknown]
  - Agitation [Unknown]
  - Abnormal behaviour [Unknown]
